FAERS Safety Report 8266470-6 (Version None)
Quarter: 2012Q2

REPORT INFORMATION
  Report Type: 
  Country: None (occurrence: None)
  Receive Date: 20120406
  Receipt Date: 20120402
  Transmission Date: 20120825
  Serious: Yes (Life-Threatening)
  Sender: FDA-Public Use
  Company Number: FR-ASTRAZENECA-2012SE21599

PATIENT
  Age: 52 Year
  Sex: Male

DRUGS (5)
  1. DIPIPERON [Suspect]
     Route: 048
  2. DEPAKENE [Suspect]
     Indication: EPILEPSY
     Route: 048
     Dates: end: 20120228
  3. DIPRIVAN [Suspect]
     Indication: ANAESTHESIA
     Route: 042
     Dates: start: 20120227, end: 20120227
  4. ASPIRIN [Suspect]
     Indication: CEREBROVASCULAR ACCIDENT
     Route: 048
  5. LIORESAL [Suspect]
     Indication: CEREBROVASCULAR ACCIDENT
     Route: 065

REACTIONS (3)
  - RESPIRATORY DISTRESS [None]
  - PANCREATITIS ACUTE [None]
  - CIRCULATORY COLLAPSE [None]
